FAERS Safety Report 17469287 (Version 1)
Quarter: 2020Q1

REPORT INFORMATION
  Report Type: Spontaneous
  Country: US (occurrence: US)
  Receive Date: 20200227
  Receipt Date: 20200227
  Transmission Date: 20200409
  Serious: Yes (Other)
  Sender: FDA-Public Use
  Company Number: US-BAYER-2020-032057

PATIENT

DRUGS (1)
  1. AFRIN ORIGINAL [Suspect]
     Active Substance: OXYMETAZOLINE HYDROCHLORIDE
     Dosage: ALL DAY LONG, QD
     Dates: start: 2017

REACTIONS (4)
  - Dyspnoea [None]
  - Drug dependence [None]
  - Nasal congestion [None]
  - Incorrect product administration duration [Unknown]

NARRATIVE: CASE EVENT DATE: 2017
